FAERS Safety Report 5235073-X (Version None)
Quarter: 2007Q1

REPORT INFORMATION
  Report Type: 
  Country: None (occurrence: None)
  Receive Date: 20070207
  Receipt Date: 20070202
  Transmission Date: 20070707
  Serious: Yes (Life-Threatening)
  Sender: FDA-Public Use
  Company Number: 06H-163-0307556-00

PATIENT
  Age: 45 Year
  Sex: Female
  Weight: 76.2043 kg

DRUGS (52)
  1. MIDAZOLAM HYDROCHLORIDE [Suspect]
     Indication: SEDATION
     Dosage: 2-9 ML/HR, CONTINUOUS INFUSION, INTRAVENOUS
     Route: 042
     Dates: start: 20060412, end: 20060412
  2. FAMOTIDINE [Concomitant]
  3. NICOTINE [Concomitant]
  4. AZTREONAM (AZTREONAM) [Concomitant]
  5. PROSTAT (CHLORMADINONE ACETATE) [Concomitant]
  6. LOVENOX [Concomitant]
  7. MICONAZOLE [Concomitant]
  8. CASPOFUNGIN (CASPOFUNGIN) [Concomitant]
  9. NIZATROLE CREAM [Concomitant]
  10. FUROSEMIDE [Concomitant]
  11. METHYLDOPATE (METHYLDOPATE) [Concomitant]
  12. METOPROLOL TARTRATE [Concomitant]
  13. HYDRALAZINE HCL [Concomitant]
  14. CLINDAMYCIN [Concomitant]
  15. METHYLPREDNISOLONE [Concomitant]
  16. VANCOMYCIN [Concomitant]
  17. POTASSIUM CHLORIDE [Concomitant]
  18. CELEXA [Concomitant]
  19. INSULIN (INSULIN) [Concomitant]
  20. MIDAZOLAM HCL [Concomitant]
  21. ATIVAN [Concomitant]
  22. FENTANYL [Concomitant]
  23. METRONIDAZOLE [Concomitant]
  24. ALBUTEROL [Concomitant]
  25. FLUCONAZOLE [Concomitant]
  26. LOPRESSOR [Concomitant]
  27. CALCIUM GLUCONATE [Concomitant]
  28. LASIX [Concomitant]
  29. NYSTATIN [Concomitant]
  30. NIMBEX [Concomitant]
  31. VASOTEC [Concomitant]
  32. MAGNESIUM SULFATE [Concomitant]
  33. TYLENOL [Concomitant]
  34. VERSED [Concomitant]
  35. SODIUM CHLORIDE 0.9% [Concomitant]
  36. CLONIDINE [Concomitant]
  37. HEPARIN [Concomitant]
  38. ALDOMET [Concomitant]
  39. PREVACID [Concomitant]
  40. LEVAQUIN [Concomitant]
  41. BICARBONATE [Concomitant]
  42. SODIUM CHLORIDE [Concomitant]
  43. NEOSYNEPHRINE (PHENYLEPHRINE HYDROCHLORIDE) [Concomitant]
  44. ALBUMIN (HUMAN) [Concomitant]
  45. PACKED RBC'S (RED BLOOD CELLS, CONCENTRATED) [Concomitant]
  46. RINGER'S [Concomitant]
  47. HETASTARCH IN SODIUM CHLORIDE [Concomitant]
  48. NEOSPORIN [Concomitant]
  49. ENOXAPARIN SODIUM [Concomitant]
  50. CITALOPRAM HYDROBROMIDE [Concomitant]
  51. MAGNESIUM (MAGNESIUM) [Concomitant]
  52. FENTANYL TRANSDERMAL SYSTEM [Concomitant]

REACTIONS (7)
  - CEREBROVASCULAR ACCIDENT [None]
  - HYPERTENSION [None]
  - MITRAL VALVE INCOMPETENCE [None]
  - OVARIAN ENLARGEMENT [None]
  - PETECHIAE [None]
  - PULMONARY OEDEMA [None]
  - TRICUSPID VALVE INCOMPETENCE [None]
